FAERS Safety Report 15472590 (Version 2)
Quarter: 2018Q4

REPORT INFORMATION
  Report Type: Spontaneous
  Country: FR (occurrence: FR)
  Receive Date: 20181008
  Receipt Date: 20181016
  Transmission Date: 20190205
  Serious: Yes (Other)
  Sender: FDA-Public Use
  Company Number: FR-ACCORD-073140

PATIENT
  Age: 43 Year
  Sex: Female

DRUGS (4)
  1. PACLITAXEL/PACLITAXEL LIPOSOME [Concomitant]
     Indication: BREAST CANCER
     Route: 041
     Dates: start: 20170616, end: 20180111
  2. CAPECITABINE. [Suspect]
     Active Substance: CAPECITABINE
     Indication: BREAST CANCER
     Route: 048
     Dates: start: 20170616, end: 20171229
  3. PERJETA [Suspect]
     Active Substance: PERTUZUMAB
     Indication: BREAST CANCER
     Route: 041
     Dates: start: 20170616, end: 20171222
  4. TRASTUZUMAB. [Concomitant]
     Active Substance: TRASTUZUMAB
     Indication: BREAST CANCER
     Dosage: CF COMMENTAIRE
     Route: 041
     Dates: start: 20170616, end: 20180112

REACTIONS (1)
  - Colitis ischaemic [Recovered/Resolved]

NARRATIVE: CASE EVENT DATE: 2017
